FAERS Safety Report 9995392 (Version 1)
Quarter: 2014Q1

REPORT INFORMATION
  Report Type: Spontaneous
  Country: US (occurrence: None)
  Receive Date: 20140225
  Receipt Date: 20140225
  Transmission Date: 20141002
  Serious: Yes (Other)
  Sender: FDA-Public Use
  Company Number: 2013-183

PATIENT
  Age: 58 Year
  Sex: Female
  Weight: 83.4 kg

DRUGS (3)
  1. PRIALT [Suspect]
     Indication: POST LAMINECTOMY SYNDROME
     Dosage: UNK MCG
     Dates: end: 20130131
  2. PRIALT [Suspect]
     Indication: INTERVERTEBRAL DISC DISORDER
     Dosage: UNK MCG
     Dates: end: 20130131
  3. LORTAB(HYDROCODONE BITARTRATE, PARACETAMOL) [Concomitant]

REACTIONS (1)
  - Hallucination, auditory [None]
